FAERS Safety Report 22250793 (Version 1)
Quarter: 2023Q2

REPORT INFORMATION
  Report Type: Spontaneous
  Country: DE (occurrence: DE)
  Receive Date: 20230425
  Receipt Date: 20230425
  Transmission Date: 20230722
  Serious: Yes (Other)
  Sender: FDA-Public Use
  Company Number: DE-002147023-NVSC2023DE092672

PATIENT
  Age: 74 Year
  Sex: Female

DRUGS (1)
  1. ACYCLOVIR [Suspect]
     Active Substance: ACYCLOVIR
     Indication: Product used for unknown indication
     Dosage: SLOW INFUSION RATE OVER ONE HOUR OF INTRAVENOUS ACICLOVIR
     Route: 042

REACTIONS (1)
  - Nephropathy toxic [Unknown]
